FAERS Safety Report 4480668-4 (Version None)
Quarter: 2004Q4

REPORT INFORMATION
  Report Type: 
  Country: None (occurrence: None)
  Receive Date: 20041021
  Receipt Date: 20041012
  Transmission Date: 20050328
  Serious: Yes (Other)
  Sender: FDA-Public Use
  Company Number: FR-JNJFOC-20041004572

PATIENT
  Age: 41 Year
  Sex: Female

DRUGS (6)
  1. INFLIXIMAB [Suspect]
     Dosage: 6TH INFUSION
     Route: 042
  2. INFLIXIMAB [Suspect]
     Indication: RHEUMATOID ARTHRITIS
     Route: 042
  3. INTRAMUSCULAR GOLD [Concomitant]
  4. SALAZOPYRIN [Concomitant]
  5. CYCLOSPORINE [Concomitant]
  6. PREDNISOLONE [Concomitant]

REACTIONS (2)
  - NEUROPATHY PERIPHERAL [None]
  - VASCULITIS NECROTISING [None]
